FAERS Safety Report 7206332-6 (Version None)
Quarter: 2011Q1

REPORT INFORMATION
  Report Type: 
  Country: None (occurrence: None)
  Receive Date: 20110103
  Receipt Date: 20110103
  Transmission Date: 20110831
  Serious: Yes (Hospitalization, Other)
  Sender: FDA-Public Use
  Company Number: PHHO2007FR17759

PATIENT
  Sex: Female
  Weight: 59 kg

DRUGS (1)
  1. CERTICAN [Suspect]
     Indication: CONGENITAL CYSTIC KIDNEY DISEASE
     Dosage: 2.5 MG, QD
     Route: 048
     Dates: end: 20071024

REACTIONS (5)
  - HAEMATURIA [None]
  - RENAL CYST HAEMORRHAGE [None]
  - FLANK PAIN [None]
  - DISEASE PROGRESSION [None]
  - THROMBOCYTOPENIA [None]
